FAERS Safety Report 10338449 (Version 2)
Quarter: 2014Q3

REPORT INFORMATION
  Report Type: Spontaneous
  Country: US (occurrence: US)
  Receive Date: 20140724
  Receipt Date: 20140724
  Transmission Date: 20150326
  Serious: Yes (Hospitalization)
  Sender: FDA-Public Use
  Company Number: US-GLAXOSMITHKLINE-A0837522A

PATIENT
  Age: 46 Year
  Sex: Female

DRUGS (13)
  1. DIOVAN [Concomitant]
     Active Substance: VALSARTAN
  2. ADVAIR HFA [Concomitant]
     Active Substance: FLUTICASONE PROPIONATE\SALMETEROL XINAFOATE
  3. ASA [Concomitant]
     Active Substance: ASPIRIN
  4. POTASSIUM CL [Concomitant]
     Active Substance: POTASSIUM CHLORIDE
  5. AVANDIA [Suspect]
     Active Substance: ROSIGLITAZONE MALEATE
     Indication: TYPE 2 DIABETES MELLITUS
     Dosage: 2MG TWICE PER DAY
     Route: 048
     Dates: end: 20050928
  6. AMARYL [Concomitant]
     Active Substance: GLIMEPIRIDE
  7. CARDURA [Concomitant]
     Active Substance: DOXAZOSIN MESYLATE
  8. GLUCOPHAGE [Concomitant]
     Active Substance: METFORMIN HYDROCHLORIDE
  9. IMDUR [Concomitant]
     Active Substance: ISOSORBIDE MONONITRATE
  10. ZOCOR [Concomitant]
     Active Substance: SIMVASTATIN
  11. ALBUTEROL. [Concomitant]
     Active Substance: ALBUTEROL
  12. CALAN [Concomitant]
     Active Substance: VERAPAMIL HYDROCHLORIDE
  13. COREG [Concomitant]
     Active Substance: CARVEDILOL

REACTIONS (1)
  - Cardiac failure congestive [Not Recovered/Not Resolved]

NARRATIVE: CASE EVENT DATE: 20050618
